FAERS Safety Report 17919755 (Version 1)
Quarter: 2020Q2

REPORT INFORMATION
  Report Type: Other
  Country: US (occurrence: US)
  Receive Date: 20200619
  Receipt Date: 20200619
  Transmission Date: 20200714
  Serious: No
  Sender: FDA-Public Use
  Company Number: US-C B FLEET CO INC-201910-US-003473

PATIENT
  Age: 6 Year
  Sex: Male

DRUGS (1)
  1. PERMETHRIN. [Suspect]
     Active Substance: PERMETHRIN
     Indication: PRODUCT USED FOR UNKNOWN INDICATION
     Dosage: PRODUCT APPLIED REPEATEDLY
     Route: 061

REACTIONS (5)
  - Noninfective conjunctivitis [Recovered/Resolved]
  - Skin irritation [Recovered/Resolved]
  - Off label use [None]
  - Erythema [Recovered/Resolved]
  - Inappropriate schedule of product administration [None]
